FAERS Safety Report 20640136 (Version 1)
Quarter: 2022Q1

REPORT INFORMATION
  Report Type: Spontaneous
  Country: US (occurrence: US)
  Receive Date: 20220326
  Receipt Date: 20220326
  Transmission Date: 20220423
  Serious: No
  Sender: FDA-Public Use
  Company Number: US-GILEAD-2022-0574869

PATIENT
  Sex: Male

DRUGS (1)
  1. DESCOVY [Suspect]
     Active Substance: EMTRICITABINE\TENOFOVIR ALAFENAMIDE FUMARATE
     Indication: High risk sexual behaviour
     Dosage: 1 DOSAGE FORM, QD
     Route: 048

REACTIONS (1)
  - Product dose omission issue [Unknown]
